FAERS Safety Report 8911341 (Version 1)
Quarter: 2012Q4

REPORT INFORMATION
  Report Type: 
  Country: US (occurrence: US)
  Receive Date: 20121116
  Receipt Date: 20121116
  Transmission Date: 20130627
  Serious: No
  Sender: FDA-Public Use
  Company Number: US-GLAXOSMITHKLINE-A0998054A

PATIENT
  Age: 61 Year
  Sex: Male
  Weight: 58 kg

DRUGS (11)
  1. VOTRIENT [Suspect]
     Indication: PRODUCT USED FOR UNKNOWN INDICATION
     Dosage: 200MG Per day
     Route: 048
     Dates: start: 2011
  2. SENSIPAR [Concomitant]
  3. RENVELA [Concomitant]
  4. NUTRITIONAL SUPPLEMENT [Concomitant]
  5. VITAMIN D [Concomitant]
  6. VITAMIN B GROUP SUPPLEMENT [Concomitant]
  7. MIDODRINE [Concomitant]
  8. OMEPRAZOLE [Concomitant]
  9. BENADRYL [Concomitant]
  10. KETOCONAZOLE [Concomitant]
  11. PROMETHAZINE [Concomitant]

REACTIONS (2)
  - Vomiting [Unknown]
  - Dizziness [Unknown]
